FAERS Safety Report 5267623-1 (Version None)
Quarter: 2007Q1

REPORT INFORMATION
  Report Type: 
  Country: None (occurrence: None)
  Receive Date: 20070316
  Receipt Date: 20070308
  Transmission Date: 20070707
  Serious: Yes (Other)
  Sender: FDA-Public Use
  Company Number: US-AMGEN-US214230

PATIENT
  Sex: Male
  Weight: 85.8 kg

DRUGS (9)
  1. ARANESP [Suspect]
     Indication: RENAL FAILURE CHRONIC
     Dates: start: 20060707
  2. CELLCEPT [Concomitant]
  3. RAPAMUNE [Concomitant]
  4. POTASSIUM PHOSPHATES [Concomitant]
  5. COREG [Concomitant]
  6. NIFEDIPINE [Concomitant]
  7. CLONIDINE [Concomitant]
  8. PROTONIX [Concomitant]
  9. LASIX [Concomitant]

REACTIONS (1)
  - DRUG INEFFECTIVE [None]
